FAERS Safety Report 4388145-6 (Version None)
Quarter: 2004Q2

REPORT INFORMATION
  Report Type: 
  Country: None (occurrence: None)
  Receive Date: 20040625
  Receipt Date: 20040614
  Transmission Date: 20050107
  Serious: Yes (Hospitalization)
  Sender: FDA-Public Use
  Company Number: 2004CG011139

PATIENT
  Age: 87 Year
  Sex: 0
  Weight: 58 kg

DRUGS (8)
  1. ZESTORETIC [Suspect]
     Indication: ISCHAEMIC CARDIOMYOPATHY
     Dosage: 20 MG + 12.5 MG
     Dates: end: 20040422
  2. ACEBNUTOLOL HYDROCHLORIDE [Suspect]
     Indication: ESSENTIAL HYPERTENSION
     Dosage: 100 MG QD PO
     Route: 048
     Dates: start: 20030601
  3. MONO-TILDIEM - SLOW ERLEASE [Suspect]
     Indication: ESSENTIAL HYPERTENSION
     Dosage: 200 MG QD PO
     Route: 048
     Dates: start: 20001015, end: 20040422
  4. PLAVIX [Concomitant]
  5. NITROGLYCERIN [Concomitant]
  6. JOSIR [Concomitant]
  7. PENTOFLUX [Concomitant]
  8. HALDOL [Concomitant]

REACTIONS (14)
  - AGE INDETERMINATE MYOCARDIAL INFARCTION [None]
  - ATRIOVENTRICULAR BLOCK FIRST DEGREE [None]
  - BLOOD CREATININE INCREASED [None]
  - BRADYCARDIA [None]
  - CONFUSIONAL STATE [None]
  - DIZZINESS [None]
  - DRUG INTERACTION [None]
  - ELECTROCARDIOGRAM QRS COMPLEX PROLONGED [None]
  - HEART SOUNDS ABNORMAL [None]
  - HYPERGLYCAEMIA [None]
  - HYPERKALAEMIA [None]
  - HYPOTENSION [None]
  - LOCKED-IN SYNDROME [None]
  - MALAISE [None]
